FAERS Safety Report 7555558-0 (Version None)
Quarter: 2011Q2

REPORT INFORMATION
  Report Type: 
  Country: None (occurrence: None)
  Receive Date: 20110617
  Receipt Date: 20030724
  Transmission Date: 20111010
  Serious: Yes (Hospitalization)
  Sender: FDA-Public Use
  Company Number: PHEH2003US06493

PATIENT
  Age: 78 Year
  Sex: Female
  Weight: 116 kg

DRUGS (4)
  1. GLEEVEC [Suspect]
     Indication: GASTROINTESTINAL STROMAL TUMOUR
     Dosage: 400 MG, QD
     Route: 048
     Dates: start: 20010501
  2. LORAZEPAM [Concomitant]
     Dosage: UNK
  3. LEVOXYL [Concomitant]
     Dosage: UNK
  4. VITAMIN B-12 [Concomitant]
     Dosage: UNK

REACTIONS (6)
  - ASTHENIA [None]
  - IMPAIRED SELF-CARE [None]
  - BACK PAIN [None]
  - DYSPNOEA [None]
  - DEHYDRATION [None]
  - FALL [None]
